FAERS Safety Report 11310726 (Version 1)
Quarter: 2015Q3

REPORT INFORMATION
  Report Type: Spontaneous
  Country: US (occurrence: US)
  Receive Date: 20150725
  Receipt Date: 20150725
  Transmission Date: 20151125
  Serious: No
  Sender: FDA-Public Use
  Company Number: US-009507513-1507USA009472

PATIENT
  Age: 23 Year
  Sex: Female
  Weight: 65.76 kg

DRUGS (1)
  1. NEXPLANON [Suspect]
     Active Substance: ETONOGESTREL
     Indication: CONTRACEPTION
     Dosage: 1 ROD EVERY 3 YEARS IN THE LEFT ARM
     Dates: start: 201211

REACTIONS (3)
  - Muscle spasms [Unknown]
  - Amenorrhoea [Recovered/Resolved]
  - Breast pain [Unknown]

NARRATIVE: CASE EVENT DATE: 201506
